FAERS Safety Report 4448095-3 (Version None)
Quarter: 2004Q3

REPORT INFORMATION
  Report Type: 
  Country: None (occurrence: None)
  Receive Date: 20040812
  Receipt Date: 20040625
  Transmission Date: 20050211
  Serious: No
  Sender: FDA-Public Use
  Company Number: USA040671111

PATIENT
  Age: 69 Year
  Sex: Male
  Weight: 89 kg

DRUGS (5)
  1. CIALIS [Suspect]
     Dosage: 20 MG
  2. GLUCOPHAGE [Concomitant]
  3. PRILOSEC [Concomitant]
  4. LIPITOR [Concomitant]
  5. CELEXA [Concomitant]

REACTIONS (1)
  - THERAPEUTIC RESPONSE DECREASED [None]
